FAERS Safety Report 5720131-3 (Version None)
Quarter: 2008Q2

REPORT INFORMATION
  Report Type: 
  Country: None (occurrence: None)
  Receive Date: 20080428
  Receipt Date: 20071219
  Transmission Date: 20081010
  Serious: No
  Sender: FDA-Public Use
  Company Number: US-AMGEN-US251176

PATIENT
  Sex: Female
  Weight: 63.6 kg

DRUGS (2)
  1. SENSIPAR [Suspect]
     Indication: DRUG USE FOR UNKNOWN INDICATION
     Route: 048
     Dates: start: 20070701
  2. SENSIPAR [Suspect]
     Route: 048
     Dates: start: 20071001

REACTIONS (1)
  - DIARRHOEA [None]
